FAERS Safety Report 5130220-2 (Version None)
Quarter: 2006Q4

REPORT INFORMATION
  Report Type: 
  Country: None (occurrence: None)
  Receive Date: 20061019
  Receipt Date: 20061004
  Transmission Date: 20070319
  Serious: Yes (Other)
  Sender: FDA-Public Use
  Company Number: US-JNJFOC-20060504884

PATIENT
  Sex: Male

DRUGS (6)
  1. REMICADE [Suspect]
     Indication: COLITIS ULCERATIVE
     Dosage: TOTAL OF 11 INFUSIONS
     Route: 042
  2. ASULFADINE [Concomitant]
  3. INETRMITTENT CORTICOSTERIODS [Concomitant]
  4. IMURAN [Concomitant]
     Indication: CROHN'S DISEASE
  5. FOLIC ACID [Concomitant]
  6. IRON [Concomitant]

REACTIONS (1)
  - B-CELL LYMPHOMA [None]
